FAERS Safety Report 13527014 (Version 1)
Quarter: 2017Q2

REPORT INFORMATION
  Report Type: Report from Study
  Country: GR (occurrence: GR)
  Receive Date: 20170509
  Receipt Date: 20170509
  Transmission Date: 20170830
  Serious: Yes (Other)
  Sender: FDA-Public Use
  Company Number: PHHY2017GR046035

PATIENT
  Age: 51 Year
  Sex: Female

DRUGS (1)
  1. SECUKINUMAB [Suspect]
     Active Substance: SECUKINUMAB
     Indication: ANKYLOSING SPONDYLITIS
     Dosage: 150 MG, UNK
     Route: 065
     Dates: start: 201611

REACTIONS (14)
  - Chondropathy [Unknown]
  - Spondylolisthesis [Unknown]
  - Arthralgia [Unknown]
  - Lumbar spinal stenosis [Unknown]
  - Spinal pain [Unknown]
  - Spinal cord compression [Unknown]
  - Sacroiliitis [Unknown]
  - Back pain [Unknown]
  - Pain [Unknown]
  - Hepatic fibrosis [Unknown]
  - Bone erosion [Unknown]
  - Bone marrow oedema [Unknown]
  - Spinal claudication [Unknown]
  - Osteitis [Unknown]
